FAERS Safety Report 5121013-0 (Version None)
Quarter: 2006Q4

REPORT INFORMATION
  Report Type: 
  Country: None (occurrence: None)
  Receive Date: 20061005
  Receipt Date: 20060922
  Transmission Date: 20070319
  Serious: Yes (Death)
  Sender: FDA-Public Use
  Company Number: GXKR2006JP05838

PATIENT
  Age: 73 Year
  Sex: Female

DRUGS (3)
  1. METHOTRXATE [Suspect]
     Indication: RHEUMATOID ARTHRITIS
     Dosage: 7.5 MG, QW
  2. PREDNISOLONE [Suspect]
     Indication: RHEUMATOID ARTHRITIS
     Dosage: 16 MG, QD
  3. DICLOFENAC [Suspect]
     Indication: RHEUMATOID ARTHRITIS
     Dosage: 75 MG, QD

REACTIONS (12)
  - BLOOD LACTATE DEHYDROGENASE INCREASED [None]
  - BRONCHOPULMONARY ASPERGILLOSIS [None]
  - C-REACTIVE PROTEIN INCREASED [None]
  - DISSEMINATED INTRAVASCULAR COAGULATION [None]
  - DRUG INTERACTION [None]
  - GAIT DISTURBANCE [None]
  - HYPOGAMMAGLOBULINAEMIA [None]
  - LUNG INFILTRATION [None]
  - LYMPHOPENIA [None]
  - MALAISE [None]
  - PNEUMOCYSTIS JIROVECI PNEUMONIA [None]
  - RALES [None]
